FAERS Safety Report 7532850-7 (Version None)
Quarter: 2011Q2

REPORT INFORMATION
  Report Type: 
  Country: None (occurrence: None)
  Receive Date: 20110608
  Receipt Date: 20110603
  Transmission Date: 20111010
  Serious: Yes (Hospitalization, Other)
  Sender: FDA-Public Use
  Company Number: US-PFIZER INC-2011040413

PATIENT
  Sex: Male

DRUGS (7)
  1. KLONOPIN [Concomitant]
     Indication: ANXIETY
     Dosage: UNK
     Dates: start: 19970101, end: 20110101
  2. CHANTIX [Suspect]
     Indication: SMOKING CESSATION THERAPY
     Dosage: STARTING PACK 0.5 MGX11, 1MGX42
     Dates: start: 20080822, end: 20080901
  3. DEPAKOTE [Concomitant]
     Indication: DEPRESSION
     Dosage: UNK
     Dates: start: 19970101
  4. PAXIL [Concomitant]
     Indication: DEPRESSION
     Dosage: UNK
     Dates: start: 20060101, end: 20081205
  5. DEPAKOTE [Concomitant]
     Indication: BIPOLAR DISORDER
  6. LIPITOR [Concomitant]
     Indication: BLOOD CHOLESTEROL INCREASED
     Dosage: UNK
     Dates: start: 19980101, end: 20081001
  7. ZOLOFT [Concomitant]
     Indication: BIPOLAR DISORDER
     Dosage: UNK
     Dates: start: 19970101

REACTIONS (15)
  - SUICIDE ATTEMPT [None]
  - ATTENTION DEFICIT/HYPERACTIVITY DISORDER [None]
  - COGNITIVE DISORDER [None]
  - HALLUCINATION [None]
  - PSYCHOTIC BEHAVIOUR [None]
  - NECK INJURY [None]
  - PARANOIA [None]
  - MANIA [None]
  - TREMOR [None]
  - MUSCLE TWITCHING [None]
  - INTENTIONAL SELF-INJURY [None]
  - ANXIETY [None]
  - DEPRESSION [None]
  - LACERATION [None]
  - HALLUCINATION, AUDITORY [None]
